FAERS Safety Report 24297978 (Version 1)
Quarter: 2024Q3

REPORT INFORMATION
  Report Type: Spontaneous
  Country: US (occurrence: None)
  Receive Date: 20240906
  Receipt Date: 20240906
  Transmission Date: 20241016
  Serious: Yes (Hospitalization)
  Sender: Public
  Company Number: None

PATIENT
  Age: 91 Year
  Sex: Male

DRUGS (3)
  1. JAYPIRCA [Suspect]
     Active Substance: PIRTOBRUTINIB
     Indication: B-cell small lymphocytic lymphoma
     Dosage: FREQUENCY : DAILY;?
     Route: 048
     Dates: start: 202408
  2. JAYPIRCA [Suspect]
     Active Substance: PIRTOBRUTINIB
     Indication: Burkitt^s lymphoma stage III
  3. PROCRIT [Concomitant]
     Active Substance: ERYTHROPOIETIN

REACTIONS (3)
  - White blood cell count increased [None]
  - Renal failure [None]
  - Blood uric acid increased [None]

NARRATIVE: CASE EVENT DATE: 20240807
